FAERS Safety Report 6306297-5 (Version None)
Quarter: 2009Q3

REPORT INFORMATION
  Report Type: 
  Country: None (occurrence: None)
  Receive Date: 20090810
  Receipt Date: 20090804
  Transmission Date: 20100115
  Serious: Yes (Other)
  Sender: FDA-Public Use
  Company Number: GXKR2009DE08804

PATIENT
  Sex: Female

DRUGS (1)
  1. ALENDRON-HEXAL (NGX) (ALENDRONIC ACID) TABLET, 70MG [Suspect]
     Indication: OSTEOPOROSIS
     Dosage: 70 MG, QW, ORAL
     Route: 048

REACTIONS (1)
  - MACULAR OEDEMA [None]
